FAERS Safety Report 8290215 (Version 3)
Quarter: 2013Q1

REPORT INFORMATION
  Report Type: Spontaneous
  Country: AU (occurrence: AU)
  Receive Date: 20111214
  Receipt Date: 20130128
  Transmission Date: 20140127
  Serious: Yes (Other)
  Sender: FDA-Public Use
  Company Number: AU-UCBSA-047431

PATIENT
  Age: 24 Hour
  Sex: Female
  Weight: 2.4 kg

DRUGS (10)
  1. KEPPRA [Suspect]
     Indication: EPILEPSY
     Dosage: PLAN TO TAPER AND STOP OVER NEXT 4 WEEKS
     Route: 064
     Dates: start: 2011, end: 2011
  2. KEPPRA [Suspect]
     Indication: EPILEPSY
     Route: 064
     Dates: start: 2011, end: 2011
  3. KEPPRA [Suspect]
     Indication: EPILEPSY
     Route: 064
     Dates: start: 201103, end: 2011
  4. KEPPRA [Suspect]
     Indication: EPILEPSY
     Route: 064
     Dates: start: 20110315, end: 201103
  5. KEPPRA [Suspect]
     Indication: EPILEPSY
     Route: 064
     Dates: start: 20110220, end: 20110307
  6. PHENYTOIN [Suspect]
     Indication: EPILEPSY
     Route: 064
     Dates: start: 2011, end: 20110220
  7. PHENYTOIN [Suspect]
     Indication: EPILEPSY
     Route: 064
     Dates: start: 2011, end: 201103
  8. PHENYTOIN [Suspect]
     Indication: EPILEPSY
     Dosage: LOADING DOSE 300 MG
     Route: 064
     Dates: start: 20110921, end: 201109
  9. CLOBAZAM [Suspect]
     Indication: EPILEPSY
     Route: 064
     Dates: start: 2011, end: 2011
  10. CLONAZEPAM [Concomitant]
     Indication: EPILEPSY
     Route: 064
     Dates: start: 201109, end: 20110928

REACTIONS (2)
  - Premature baby [Recovered/Resolved]
  - Foetal exposure during pregnancy [Recovered/Resolved]
